FAERS Safety Report 7688785-2 (Version None)
Quarter: 2011Q3

REPORT INFORMATION
  Report Type: 
  Country: None (occurrence: None)
  Receive Date: 20110817
  Receipt Date: 20110808
  Transmission Date: 20111222
  Serious: Yes (Other)
  Sender: FDA-Public Use
  Company Number: US-ASTRAZENECA-2011SE47539

PATIENT
  Age: 73 Year
  Sex: Female
  Weight: 70.3 kg

DRUGS (3)
  1. HYDROXYUREA [Concomitant]
  2. LIPITOR [Concomitant]
  3. ARIMIDEX [Suspect]
     Route: 048
     Dates: start: 20090101

REACTIONS (3)
  - UVEITIS [None]
  - EYE HAEMORRHAGE [None]
  - DRY EYE [None]
